FAERS Safety Report 12604853 (Version 2)
Quarter: 2016Q3

REPORT INFORMATION
  Report Type: Spontaneous
  Country: BR (occurrence: BR)
  Receive Date: 20160728
  Receipt Date: 20160914
  Transmission Date: 20161109
  Serious: Yes (Other)
  Sender: FDA-Public Use
  Company Number: BR-ALLERGAN-1663958US

PATIENT
  Age: 72 Year
  Sex: Male

DRUGS (1)
  1. OZURDEX [Suspect]
     Active Substance: DEXAMETHASONE
     Indication: OFF LABEL USE
     Dosage: 0.7 MG, SINGLE
     Route: 031

REACTIONS (3)
  - Device dislocation [Recovered/Resolved]
  - Off label use [Unknown]
  - Injury corneal [Not Recovered/Not Resolved]
